FAERS Safety Report 12488762 (Version 6)
Quarter: 2016Q4

REPORT INFORMATION
  Report Type: Spontaneous
  Country: GB (occurrence: GB)
  Receive Date: 20160622
  Receipt Date: 20161118
  Transmission Date: 20170207
  Serious: Yes (Death, Hospitalization, Other)
  Sender: FDA-Public Use
  Company Number: GB-PFIZER INC-2016307232

PATIENT
  Age: 76 Year
  Sex: Male
  Weight: 81.64 kg

DRUGS (3)
  1. PREGABALIN. [Suspect]
     Active Substance: PREGABALIN
     Indication: GENERALISED ANXIETY DISORDER
     Dosage: UNK
     Route: 048
     Dates: start: 20160330, end: 20160421
  2. PREGABALIN. [Suspect]
     Active Substance: PREGABALIN
     Dosage: DOSE DOUBLED
     Route: 048
     Dates: start: 201604
  3. PRIADEL /00033702/ [Suspect]
     Active Substance: LITHIUM CARBONATE
     Dosage: UNK
     Dates: start: 20080711

REACTIONS (16)
  - Head injury [Fatal]
  - Pneumonia [Fatal]
  - Ankle fracture [Not Recovered/Not Resolved]
  - Skull fracture [Unknown]
  - Dizziness [Unknown]
  - Drug ineffective [Unknown]
  - Abnormal behaviour [Unknown]
  - Brain contusion [Fatal]
  - Anxiety [Not Recovered/Not Resolved]
  - Condition aggravated [Not Recovered/Not Resolved]
  - Diplopia [Unknown]
  - Spinal fracture [Unknown]
  - Fall [Not Recovered/Not Resolved]
  - Drug prescribing error [Fatal]
  - Psychotic disorder [Fatal]
  - Disturbance in attention [Not Recovered/Not Resolved]

NARRATIVE: CASE EVENT DATE: 20160330
